FAERS Safety Report 7154657-5 (Version None)
Quarter: 2010Q4

REPORT INFORMATION
  Report Type: 
  Country: None (occurrence: None)
  Receive Date: 20101214
  Receipt Date: 20091104
  Transmission Date: 20110411
  Serious: No
  Sender: FDA-Public Use
  Company Number: US-AMGEN-KDL373000

PATIENT

DRUGS (2)
  1. ENBREL [Suspect]
     Indication: PSORIASIS
  2. ADALIMUMAB [Suspect]
     Dosage: 40 MG, Q2WK
     Dates: start: 20080901, end: 20090910

REACTIONS (2)
  - PRURITUS [None]
  - RASH ERYTHEMATOUS [None]
